FAERS Safety Report 5424925-3 (Version None)
Quarter: 2007Q3

REPORT INFORMATION
  Report Type: 
  Country: None (occurrence: None)
  Receive Date: 20070824
  Receipt Date: 20070815
  Transmission Date: 20080115
  Serious: Yes (Other)
  Sender: FDA-Public Use
  Company Number: US-JNJFOC-20070803638

PATIENT
  Sex: Female
  Weight: 111.59 kg

DRUGS (9)
  1. REMICADE [Suspect]
     Route: 042
  2. REMICADE [Suspect]
     Route: 042
  3. REMICADE [Suspect]
     Indication: RHEUMATOID ARTHRITIS
     Route: 042
  4. ARAVA [Concomitant]
  5. PREDNISONE TAB [Concomitant]
  6. FOLIC ACID [Concomitant]
  7. POTASSIUM CHLORIDE [Concomitant]
  8. BENADRYL [Concomitant]
     Indication: PREMEDICATION
  9. TYLENOL [Concomitant]
     Indication: PREMEDICATION

REACTIONS (7)
  - CHONDROPATHY [None]
  - EXTRASYSTOLES [None]
  - FEELING ABNORMAL [None]
  - HEADACHE [None]
  - PHARYNGOLARYNGEAL PAIN [None]
  - RASH PRURITIC [None]
  - WEIGHT INCREASED [None]
